FAERS Safety Report 9602436 (Version 1)
Quarter: 2013Q4

REPORT INFORMATION
  Report Type: Spontaneous
  Country: US (occurrence: US)
  Receive Date: 20131007
  Receipt Date: 20131007
  Transmission Date: 20140711
  Serious: No
  Sender: FDA-Public Use
  Company Number: US-BAYER-2013-120591

PATIENT
  Age: 88 Year
  Sex: Male
  Weight: 79.37 kg

DRUGS (6)
  1. ALEVE TABLET [Suspect]
     Dosage: 1 DF, BID
     Route: 048
     Dates: start: 2013
  2. ALEVE TABLET [Suspect]
     Dosage: 1 DF, TID
     Route: 048
  3. ALEVE GELCAPS [Suspect]
     Dosage: 1 DF, BID
     Route: 048
     Dates: start: 2013
  4. ALEVE GELCAPS [Suspect]
     Dosage: 1 DF, TID
     Route: 048
  5. LORAZEPAM [Concomitant]
  6. VITAMINS [Concomitant]

REACTIONS (2)
  - Drug ineffective [None]
  - Incorrect drug administration duration [None]
